FAERS Safety Report 4337740-9 (Version None)
Quarter: 2004Q2

REPORT INFORMATION
  Report Type: 
  Country: None (occurrence: None)
  Receive Date: 20040412
  Receipt Date: 20040308
  Transmission Date: 20050107
  Serious: No
  Sender: FDA-Public Use
  Company Number: 7794

PATIENT
  Sex: Female

DRUGS (1)
  1. CYTARABINE [Suspect]
     Indication: ACUTE LYMPHOCYTIC LEUKAEMIA
     Dosage: 130 MG FREQ

REACTIONS (2)
  - CEREBROVASCULAR ACCIDENT [None]
  - INJECTION SITE PAIN [None]
